FAERS Safety Report 4282097-5 (Version None)
Quarter: 2004Q1

REPORT INFORMATION
  Report Type: 
  Country: None (occurrence: None)
  Receive Date: 20040130
  Receipt Date: 20030514
  Transmission Date: 20041129
  Serious: No
  Sender: FDA-Public Use
  Company Number: US-BRISTOL-MYERS SQUIBB COMPANY-12275830

PATIENT
  Age: 69 Year
  Sex: Female
  Weight: 54 kg

DRUGS (3)
  1. TRAZODONE HCL [Suspect]
     Indication: DEPRESSION
     Dosage: CONSUMER TAKING FOR OVER 1 YEAR-100MG DAILY AT NIGHT
     Route: 048
  2. TRAZODONE HCL [Suspect]
     Indication: INSOMNIA
     Dosage: CONSUMER TAKING FOR OVER 1 YEAR-100MG DAILY AT NIGHT
     Route: 048
  3. XANAX [Concomitant]

REACTIONS (1)
  - DYSKINESIA [None]
